FAERS Safety Report 13896448 (Version 1)
Quarter: 2017Q3

REPORT INFORMATION
  Report Type: Spontaneous
  Country: US (occurrence: None)
  Receive Date: 20170816
  Receipt Date: 20170816
  Transmission Date: 20171127
  Serious: Yes (Hospitalization)
  Sender: FDA-Public Use
  Company Number: None

PATIENT
  Age: 80 Year
  Sex: Male
  Weight: 73.6 kg

DRUGS (6)
  1. DALTEPARIN [Suspect]
     Active Substance: DALTEPARIN
     Indication: VENA CAVA THROMBOSIS
     Route: 058
     Dates: start: 20170707
  2. DILTIAZEM. [Concomitant]
     Active Substance: DILTIAZEM
  3. SIMVASTATIN. [Concomitant]
     Active Substance: SIMVASTATIN
  4. VITAMIN D3 [Concomitant]
     Active Substance: CHOLECALCIFEROL
  5. FUROSEMIDE. [Concomitant]
     Active Substance: FUROSEMIDE
  6. METOPROLOL TARTRATE. [Concomitant]
     Active Substance: METOPROLOL TARTRATE

REACTIONS (7)
  - Acute myocardial infarction [None]
  - Hypotension [None]
  - Cardiac failure congestive [None]
  - Dyspnoea [None]
  - Asthenia [None]
  - Atrial flutter [None]
  - Myocardial infarction [None]

NARRATIVE: CASE EVENT DATE: 20170730
